FAERS Safety Report 6324280-0 (Version None)
Quarter: 2009Q3

REPORT INFORMATION
  Report Type: 
  Country: None (occurrence: None)
  Receive Date: 20090824
  Receipt Date: 20090424
  Transmission Date: 20100115
  Serious: No
  Sender: FDA-Public Use
  Company Number: US-ABBOTT-09P-163-0569918-00

PATIENT
  Age: 62 Year
  Sex: Female

DRUGS (7)
  1. NIASPAN [Suspect]
     Indication: BLOOD TRIGLYCERIDES INCREASED
     Dosage: 500 MG-1/2 PILL
     Route: 048
     Dates: start: 20090301
  2. NIASPAN [Suspect]
     Indication: HIGH DENSITY LIPOPROTEIN DECREASED
  3. ZETIA [Concomitant]
     Indication: DRUG USE FOR UNKNOWN INDICATION
  4. ASPIRIN [Concomitant]
     Indication: DRUG USE FOR UNKNOWN INDICATION
  5. ACCUPRIL [Concomitant]
     Indication: DRUG USE FOR UNKNOWN INDICATION
  6. VERAPAMIL [Concomitant]
     Indication: DRUG USE FOR UNKNOWN INDICATION
  7. HYDROCHLOROTHIAZIDE [Concomitant]
     Indication: DRUG USE FOR UNKNOWN INDICATION

REACTIONS (2)
  - ABDOMINAL DISCOMFORT [None]
  - FLUSHING [None]
